FAERS Safety Report 5338160-0 (Version None)
Quarter: 2007Q2

REPORT INFORMATION
  Report Type: 
  Country: None (occurrence: None)
  Receive Date: 20070327
  Receipt Date: 20070212
  Transmission Date: 20071010
  Serious: Yes (Other)
  Sender: FDA-Public Use
  Company Number: 236718

PATIENT
  Sex: 0

DRUGS (4)
  1. AVASTIN [Suspect]
     Indication: COLORECTAL CANCER METASTATIC
  2. LEUCOVORIN CALCIUM [Concomitant]
  3. OXALIPLATIN [Concomitant]
  4. FLUOROURACIL [Concomitant]

REACTIONS (1)
  - MYOCARDIAL INFARCTION [None]
